FAERS Safety Report 4694702-X (Version None)
Quarter: 2005Q2

REPORT INFORMATION
  Report Type: 
  Country: None (occurrence: None)
  Receive Date: 20050617
  Receipt Date: 20050610
  Transmission Date: 20051028
  Serious: Yes (Hospitalization)
  Sender: FDA-Public Use
  Company Number: 200512437BCC

PATIENT
  Age: 4 Year
  Sex: Male
  Weight: 19.9583 kg

DRUGS (2)
  1. RID MOUSSE [Suspect]
     Indication: LICE INFESTATION
     Dates: start: 20050603
  2. RID HOME LICE CONTROL SPRAY (PERMETHRIN) [Suspect]
     Indication: LICE INFESTATION
     Dosage: RESPIRATORY (INHALATION)
     Route: 055
     Dates: start: 20050603

REACTIONS (5)
  - DYSARTHRIA [None]
  - GAIT DISTURBANCE [None]
  - LOSS OF CONTROL OF LEGS [None]
  - MOVEMENT DISORDER [None]
  - NERVE INJURY [None]
